FAERS Safety Report 8496737-8 (Version None)
Quarter: 2012Q3

REPORT INFORMATION
  Report Type: 
  Country: None (occurrence: None)
  Receive Date: 20120709
  Receipt Date: 20120706
  Transmission Date: 20120928
  Serious: Yes (Hospitalization, Disabling)
  Sender: FDA-Public Use
  Company Number: CA-ROCHE-1085010

PATIENT
  Age: 43 Year
  Sex: Female
  Weight: 112 kg

DRUGS (1)
  1. RITUXAN [Suspect]
     Indication: PRODUCT USED FOR UNKNOWN INDICATION
     Route: 042

REACTIONS (6)
  - MOUTH ULCERATION [None]
  - HERPES SIMPLEX [None]
  - NEUTROPENIA [None]
  - OROPHARYNGEAL PAIN [None]
  - NEOPLASM [None]
  - ORAL CANDIDIASIS [None]
